FAERS Safety Report 7561462-4 (Version None)
Quarter: 2011Q2

REPORT INFORMATION
  Report Type: 
  Country: None (occurrence: None)
  Receive Date: 20110621
  Receipt Date: 20110617
  Transmission Date: 20111010
  Serious: Yes (Other)
  Sender: FDA-Public Use
  Company Number: CN-GENZYME-FLUD-1001157

PATIENT
  Age: 30 Year
  Sex: Male

DRUGS (13)
  1. CYTARABINE [Suspect]
     Indication: STEM CELL TRANSPLANT
  2. THYMOGLOBULIN [Suspect]
     Indication: PROPHYLAXIS AGAINST GRAFT VERSUS HOST DISEASE
     Dosage: 5 MG/KG, QDX4 ON DAYS -4 TO -1
     Route: 065
  3. CYCLOSPORINE [Concomitant]
     Indication: PROPHYLAXIS AGAINST GRAFT VERSUS HOST DISEASE
     Dosage: 1.25 MG/KG, Q12HR STARTING ON DAY -10
     Route: 065
  4. BUSULFAN [Suspect]
     Indication: MYELODYSPLASTIC SYNDROME
     Dosage: 4 MG/KG, QDX3 ON DAYS -7 TO -5
     Route: 048
  5. METHOTREXATE [Concomitant]
     Indication: PROPHYLAXIS AGAINST GRAFT VERSUS HOST DISEASE
     Dosage: 15 MG/M2, ONCE ON DAY +1
     Route: 065
  6. METHOTREXATE [Concomitant]
     Dosage: 10 MG/M2, QD ON DAYS +3, +6, AND +11
     Route: 065
  7. BUSULFAN [Suspect]
     Indication: STEM CELL TRANSPLANT
  8. CYTARABINE [Suspect]
     Indication: MYELODYSPLASTIC SYNDROME
     Dosage: 4 G/M2, QDX2 ON DAYS -9 AND -8
     Route: 041
  9. FLUDARA [Suspect]
     Indication: STEM CELL TRANSPLANT
  10. SEMUSTINE CAP [Suspect]
     Indication: MYELODYSPLASTIC SYNDROME
     Dosage: 250 MG/M2, ONCE ON DAY -3
     Route: 048
  11. FLUDARA [Suspect]
     Indication: MYELODYSPLASTIC SYNDROME
     Dosage: 40 MG/M2, QDX5 ON DAYS -7 TO -3
     Route: 041
  12. SEMUSTINE CAP [Suspect]
     Indication: STEM CELL TRANSPLANT
  13. MYCOPHENOLATE MEFETIL [Concomitant]
     Indication: PROPHYLAXIS AGAINST GRAFT VERSUS HOST DISEASE
     Dosage: 0.25 - 0.5 G/KG Q12HR STARTING ON DAY -10
     Route: 065

REACTIONS (1)
  - ACUTE GRAFT VERSUS HOST DISEASE [None]
